FAERS Safety Report 13275143 (Version 1)
Quarter: 2017Q1

REPORT INFORMATION
  Report Type: Spontaneous
  Country: FR (occurrence: FR)
  Receive Date: 20170227
  Receipt Date: 20170227
  Transmission Date: 20170428
  Serious: Yes (Life-Threatening, Hospitalization)
  Sender: FDA-Public Use
  Company Number: FR-ELI_LILLY_AND_COMPANY-FR201702009082

PATIENT
  Age: 34 Year
  Sex: Female
  Weight: 80 kg

DRUGS (9)
  1. AVLOCARDYL                         /00030001/ [Concomitant]
     Active Substance: PROPRANOLOL HYDROCHLORIDE
     Indication: ANXIETY
     Dosage: 40 MG, PRN
     Route: 065
  2. BACLOFENE [Suspect]
     Active Substance: BACLOFEN
     Indication: PRODUCT USED FOR UNKNOWN INDICATION
     Dosage: UNK UNK, TID
     Route: 048
  3. THERALENE [Suspect]
     Active Substance: TRIMEPRAZINE
     Indication: PRODUCT USED FOR UNKNOWN INDICATION
     Dosage: UNK UNK, UNKNOWN
     Route: 065
  4. LEXOMIL [Suspect]
     Active Substance: BROMAZEPAM
     Indication: PRODUCT USED FOR UNKNOWN INDICATION
     Dosage: 1 UNK, BID
     Route: 065
  5. LEXOMIL [Suspect]
     Active Substance: BROMAZEPAM
     Dosage: 180 MG, SINGLE
     Route: 048
     Dates: start: 20160928, end: 20160928
  6. PROZAC [Suspect]
     Active Substance: FLUOXETINE HYDROCHLORIDE
     Indication: PRODUCT USED FOR UNKNOWN INDICATION
     Dosage: 40 MG, QD
     Route: 048
  7. PROZAC [Suspect]
     Active Substance: FLUOXETINE HYDROCHLORIDE
     Dosage: 440 MG, SINGLE
     Route: 048
     Dates: start: 20160928, end: 20160928
  8. THERALENE [Suspect]
     Active Substance: TRIMEPRAZINE
     Dosage: 1600 MG, SINGLE
     Route: 048
     Dates: start: 20160928, end: 20160928
  9. BACLOFENE [Suspect]
     Active Substance: BACLOFEN
     Dosage: 1140 MG, SINGLE
     Route: 048
     Dates: start: 20160928, end: 20160928

REACTIONS (3)
  - Coma [Recovered/Resolved]
  - Poisoning [Recovered/Resolved]
  - Cardiogenic shock [Recovered/Resolved]

NARRATIVE: CASE EVENT DATE: 20160928
